FAERS Safety Report 20292359 (Version 1)
Quarter: 2022Q1

REPORT INFORMATION
  Report Type: Spontaneous
  Country: DE (occurrence: DE)
  Receive Date: 20220104
  Receipt Date: 20220104
  Transmission Date: 20220423
  Serious: Yes (Hospitalization, Other)
  Sender: FDA-Public Use
  Company Number: None

PATIENT
  Age: 70 Year
  Sex: Male
  Weight: 75 kg

DRUGS (1)
  1. TOFACITINIB [Suspect]
     Active Substance: TOFACITINIB
     Indication: Colitis ulcerative
     Dosage: 20 MG, DAILY (2 X 10 MG)
     Route: 048
     Dates: start: 2015, end: 20211216

REACTIONS (1)
  - Chondrosarcoma [Not Recovered/Not Resolved]

NARRATIVE: CASE EVENT DATE: 20201031
